FAERS Safety Report 19313326 (Version 2)
Quarter: 2021Q2

REPORT INFORMATION
  Report Type: Spontaneous
  Country: US (occurrence: US)
  Receive Date: 20210527
  Receipt Date: 20210628
  Transmission Date: 20210717
  Serious: No
  Sender: FDA-Public Use
  Company Number: US-AMGEN-USASP2021080473

PATIENT
  Age: 34 Year
  Sex: Male

DRUGS (9)
  1. OTEZLA [Suspect]
     Active Substance: APREMILAST
     Indication: PSORIASIS
     Dosage: 30 MILLIGRAM, BID
     Route: 048
     Dates: start: 20210401
  2. IBUPROFEN. [Concomitant]
     Active Substance: IBUPROFEN
  3. CLONAZEPAM. [Concomitant]
     Active Substance: CLONAZEPAM
  4. TRIAMCINOLONE [Concomitant]
     Active Substance: TRIAMCINOLONE
  5. VENLAFAXINE [Concomitant]
     Active Substance: VENLAFAXINE HYDROCHLORIDE
  6. TRAZODONE [Concomitant]
     Active Substance: TRAZODONE HYDROCHLORIDE
  7. AUGMENTED BETAMETHASONE DIPROPIONATE [Concomitant]
  8. AMOXICILLIN. [Concomitant]
     Active Substance: AMOXICILLIN
  9. PRAZOSIN. [Concomitant]
     Active Substance: PRAZOSIN

REACTIONS (4)
  - Product dose omission issue [Unknown]
  - Nausea [Not Recovered/Not Resolved]
  - Diarrhoea [Not Recovered/Not Resolved]
  - Vomiting [Not Recovered/Not Resolved]

NARRATIVE: CASE EVENT DATE: 2021
